FAERS Safety Report 12935131 (Version 12)
Quarter: 2017Q2

REPORT INFORMATION
  Report Type: Spontaneous
  Country: CA (occurrence: CA)
  Receive Date: 20161114
  Receipt Date: 20170626
  Transmission Date: 20170830
  Serious: Yes (Other)
  Sender: FDA-Public Use
  Company Number: CA-ROCHE-1852290

PATIENT
  Age: 69 Year
  Sex: Male

DRUGS (21)
  1. XOLAIR [Suspect]
     Active Substance: OMALIZUMAB
     Dosage: UNK
     Route: 058
     Dates: start: 20170419
  2. XOLAIR [Suspect]
     Active Substance: OMALIZUMAB
     Dosage: UNK
     Route: 058
     Dates: start: 20170516
  3. VENTOLIN [Concomitant]
     Active Substance: ALBUTEROL SULFATE
     Indication: PRODUCT USED FOR UNKNOWN INDICATION
     Dosage: AS NEEDED
     Route: 065
     Dates: start: 20040510
  4. VENTOLIN [Concomitant]
     Active Substance: ALBUTEROL SULFATE
     Dosage: 6 TO 8 TIMES
     Route: 065
     Dates: start: 20161102
  5. XOLAIR [Suspect]
     Active Substance: OMALIZUMAB
     Dosage: UNK
     Route: 058
     Dates: start: 20170614
  6. PREDNISONE. [Concomitant]
     Active Substance: PREDNISONE
     Dosage: (WEANING OFF) CUMMULATIVE DOSE 1732 DF
     Route: 048
     Dates: start: 20161030
  7. ADVAIR HFA [Concomitant]
     Active Substance: FLUTICASONE PROPIONATE\SALMETEROL XINAFOATE
     Indication: PRODUCT USED FOR UNKNOWN INDICATION
     Dosage: 500/50 MCG
     Route: 065
     Dates: start: 20160426
  8. SYMBICORT [Concomitant]
     Active Substance: BUDESONIDE\FORMOTEROL FUMARATE DIHYDRATE
     Indication: PRODUCT USED FOR UNKNOWN INDICATION
     Dosage: 200/6 MCG
     Route: 065
     Dates: start: 20100510, end: 20160426
  9. XOLAIR [Suspect]
     Active Substance: OMALIZUMAB
     Dosage: UNK
     Route: 058
     Dates: start: 20161228
  10. XOLAIR [Suspect]
     Active Substance: OMALIZUMAB
     Dosage: UNK
     Route: 058
     Dates: start: 20170222
  11. PREDNISONE. [Concomitant]
     Active Substance: PREDNISONE
     Dosage: 3 TABLETS
     Route: 065
  12. PREDNISONE. [Concomitant]
     Active Substance: PREDNISONE
     Dosage: 4 TO 5 TABLETS
     Route: 065
  13. PREDNISONE. [Concomitant]
     Active Substance: PREDNISONE
     Dosage: 1 DF (TABLET), QD
     Route: 065
  14. PREDNISONE. [Concomitant]
     Active Substance: PREDNISONE
     Indication: PRODUCT USED FOR UNKNOWN INDICATION
     Dosage: 2 DF, QD
     Route: 048
     Dates: start: 20140510, end: 20160921
  15. VENTOLIN [Concomitant]
     Active Substance: ALBUTEROL SULFATE
     Dosage: 15 TIMES
     Route: 065
     Dates: start: 20161101
  16. XOLAIR [Suspect]
     Active Substance: OMALIZUMAB
     Dosage: UNK
     Route: 058
     Dates: start: 20161005
  17. XOLAIR [Suspect]
     Active Substance: OMALIZUMAB
     Dosage: UNK
     Route: 058
     Dates: start: 20161102
  18. XOLAIR [Suspect]
     Active Substance: OMALIZUMAB
     Dosage: UNK
     Route: 058
     Dates: start: 20170322, end: 20170322
  19. SPIRIVA [Concomitant]
     Active Substance: TIOTROPIUM BROMIDE MONOHYDRATE
     Indication: PRODUCT USED FOR UNKNOWN INDICATION
     Dosage: 1 DF, QD
     Route: 065
     Dates: start: 20130510, end: 20160426
  20. ALVESCO [Concomitant]
     Active Substance: CICLESONIDE
     Indication: PRODUCT USED FOR UNKNOWN INDICATION
     Dosage: 2 DF, QD
     Route: 065
     Dates: start: 20130510, end: 20160426
  21. XOLAIR [Suspect]
     Active Substance: OMALIZUMAB
     Indication: ASTHMA
     Route: 058
     Dates: start: 20160907

REACTIONS (29)
  - Breath sounds abnormal [Unknown]
  - Malaise [Unknown]
  - Dyspnoea exertional [Unknown]
  - Hypoventilation [Unknown]
  - Wheezing [Recovering/Resolving]
  - Pyrexia [Unknown]
  - Cough [Unknown]
  - Respiratory tract congestion [Unknown]
  - Sensitivity to weather change [Unknown]
  - Vomiting [Unknown]
  - Rhonchi [Unknown]
  - Drug ineffective [Unknown]
  - Bacterial infection [Unknown]
  - Pneumonia [Unknown]
  - Fatigue [Unknown]
  - Lung disorder [Unknown]
  - Urinary incontinence [Unknown]
  - Lower respiratory tract infection [Not Recovered/Not Resolved]
  - Lung infection [Unknown]
  - Asthma [Not Recovered/Not Resolved]
  - Productive cough [Unknown]
  - Total lung capacity decreased [Unknown]
  - Insomnia [Unknown]
  - Chills [Unknown]
  - Blood pressure systolic increased [Unknown]
  - Nausea [Unknown]
  - Increased viscosity of bronchial secretion [Unknown]
  - Rales [Unknown]
  - Respiratory rate increased [Unknown]

NARRATIVE: CASE EVENT DATE: 20160921
